FAERS Safety Report 23219842 (Version 2)
Quarter: 2024Q4

REPORT INFORMATION
  Report Type: Spontaneous
  Country: US (occurrence: US)
  Receive Date: 20231122
  Receipt Date: 20241125
  Transmission Date: 20250115
  Serious: No
  Sender: AVADEL CNS PHARMACEUTICALS, LLC
  Company Number: US-AVADEL CNS PHARMACEUTICALS, LLC-2023AVA00147

PATIENT
  Age: 35 Year
  Sex: Female
  Weight: 68.027 kg

DRUGS (10)
  1. LUMRYZ [Suspect]
     Active Substance: SODIUM OXYBATE
     Indication: Narcolepsy
     Dosage: 2.25 G, 1X/DAY AT NIGHT
     Route: 048
     Dates: start: 20230908
  2. LUMRYZ [Suspect]
     Active Substance: SODIUM OXYBATE
     Indication: Cataplexy
     Dosage: 4.5 G, ONCE NIGHTLY
     Route: 048
  3. PROPRANOLOL [Concomitant]
     Active Substance: PROPRANOLOL HYDROCHLORIDE
     Dosage: 10 MG, ONCE DAILY
  4. METHYLPHENIDATE [Concomitant]
     Active Substance: METHYLPHENIDATE
     Dosage: 10 MG, AS NEEDED (SHE BELIEVES THE DOSE IS 10 MG) AS NEEDED AS A RESCUE DRUG (FOR EXAMPLE, SHE TAKES
  5. LAMICTAL [Concomitant]
     Active Substance: LAMOTRIGINE
     Dosage: 600 MG, ONCE DAILY
  6. LITHIUM CARBONATE [Concomitant]
     Active Substance: LITHIUM CARBONATE
     Dosage: 900 MG, ONCE DAILY
  7. UNSPECIFIED LEVONORGESTREL [Concomitant]
     Dosage: SHE TAKES A BIRTH CONTROL PRODUCT THAT IS IN THE LEVONORGESTREL FAMILY (DOSAGE UNKNOWN)
  8. SUNOSI [Concomitant]
     Active Substance: SOLRIAMFETOL
     Dosage: UNK, AS NEEDED
  9. IBUPROFEN [Concomitant]
     Active Substance: IBUPROFEN
     Dosage: UNK, AS NEEDED
  10. TYLENOL [Concomitant]
     Active Substance: ACETAMINOPHEN
     Dosage: UNK, AS NEEDED

REACTIONS (3)
  - Terminal insomnia [Not Recovered/Not Resolved]
  - Memory impairment [Not Recovered/Not Resolved]
  - Wrong technique in product usage process [Not Recovered/Not Resolved]

NARRATIVE: CASE EVENT DATE: 20230908
